FAERS Safety Report 7767822-0 (Version None)
Quarter: 2011Q3

REPORT INFORMATION
  Report Type: 
  Country: None (occurrence: None)
  Receive Date: 20110922
  Receipt Date: 20100902
  Transmission Date: 20111222
  Serious: No
  Sender: FDA-Public Use
  Company Number: US-ASTRAZENECA-2010SE41549

PATIENT
  Sex: Female

DRUGS (22)
  1. CLONAZEPAM [Concomitant]
  2. MIRALAX [Concomitant]
  3. ASCORBIC ACID [Concomitant]
  4. SEROQUEL [Suspect]
     Indication: INSOMNIA
     Route: 048
     Dates: start: 20030101
  5. PHENOBARBITAL TAB [Concomitant]
  6. DARVOCET [Concomitant]
  7. TYLENOL-500 [Concomitant]
  8. BIOTENE [Concomitant]
  9. SEROQUEL [Suspect]
     Route: 048
  10. SYNTHROID [Concomitant]
  11. CELEXA [Concomitant]
  12. CYCLOPHOSPHAMIDE [Concomitant]
  13. ESTRACE [Concomitant]
  14. ALBUTEROL [Concomitant]
  15. VITAMIN B-12 [Concomitant]
  16. NAPROXEN [Concomitant]
  17. PREVACID [Concomitant]
  18. MAXAIR [Concomitant]
  19. ESTRADERM [Concomitant]
  20. GUAIFENESIN [Concomitant]
  21. BECONASE AQ [Concomitant]
  22. INTAL [Concomitant]

REACTIONS (6)
  - SOMNOLENCE [None]
  - STRESS [None]
  - SWOLLEN TONGUE [None]
  - EYEGLASSES THERAPY [None]
  - HEADACHE [None]
  - TONGUE DISORDER [None]
